FAERS Safety Report 6764979 (Version 2)
Quarter: 2012Q4

REPORT INFORMATION
  Report Type: 
  Country: US (occurrence: US)
  Receive Date: 20080922
  Receipt Date: 20120911
  Transmission Date: 20130627
  Serious: Yes (Other)
  Sender: FDA-Public Use
  Company Number: US-JNJFOC-20080903112

PATIENT

DRUGS (1)
  1. INFLIXIMAB [Suspect]
     Indication: SARCOIDOSIS
     Route: 042

REACTIONS (1)
  - Lupus-like syndrome [Unknown]
